FAERS Safety Report 8201690-8 (Version None)
Quarter: 2012Q1

REPORT INFORMATION
  Report Type: 
  Country: None (occurrence: None)
  Receive Date: 20120308
  Receipt Date: 20120222
  Transmission Date: 20120608
  Serious: Yes (Death, Other)
  Sender: FDA-Public Use
  Company Number: 2011MPI00264

PATIENT
  Age: 27 Year
  Sex: Male

DRUGS (8)
  1. MAGNESIUM SALICYLATE (MAGNESIUM SALICYLATE) [Concomitant]
  2. DOMPERIDONE BIOGARAN (DOMPERIDONE) [Concomitant]
  3. TEMAZEPAM [Concomitant]
  4. LANSOPRAZOLE [Concomitant]
  5. CLARITHROMYCIN AL (CLARITHROMYCIN) [Concomitant]
  6. SLOW-K [Concomitant]
  7. BRENTUXIMAB VEDOTIN (BRENTUXIMAB VEDOTIN) INJECTION [Suspect]
     Indication: HODGKIN'S DISEASE REFRACTORY
     Dosage: 100 MG, INTRAVENOUS
     Route: 042
     Dates: start: 20110830, end: 20110920
  8. ACYCLOVIR [Concomitant]

REACTIONS (12)
  - LUNG CONSOLIDATION [None]
  - HERPES ZOSTER [None]
  - ORAL CANDIDIASIS [None]
  - BACTERIAL INFECTION [None]
  - LETHARGY [None]
  - COUGH [None]
  - DYSPNOEA [None]
  - HAEMOGLOBIN DECREASED [None]
  - MALAISE [None]
  - ASTHENIA [None]
  - NEOPLASM PROGRESSION [None]
  - HODGKIN'S DISEASE REFRACTORY [None]
